FAERS Safety Report 24149689 (Version 1)
Quarter: 2024Q3

REPORT INFORMATION
  Report Type: Spontaneous
  Country: US (occurrence: US)
  Receive Date: 20240730
  Receipt Date: 20240730
  Transmission Date: 20241016
  Serious: No
  Sender: BOEHRINGER INGELHEIM
  Company Number: US-BoehringerIngelheim-2024-BI-042616

PATIENT
  Sex: Male

DRUGS (2)
  1. OFEV [Suspect]
     Active Substance: NINTEDANIB
     Indication: Product used for unknown indication
     Dosage: FORM STRENGTH: 150 MILLIGRAM
  2. OFEV [Suspect]
     Active Substance: NINTEDANIB
     Dosage: FORM STRENGTH: 100 MILLIGRAM

REACTIONS (1)
  - Drug intolerance [Unknown]
